FAERS Safety Report 19392393 (Version 2)
Quarter: 2021Q3

REPORT INFORMATION
  Report Type: Spontaneous
  Country: US (occurrence: US)
  Receive Date: 20210609
  Receipt Date: 20210720
  Transmission Date: 20211014
  Serious: Yes (Other)
  Sender: FDA-Public Use
  Company Number: US-AMGEN-USASP2021087544

PATIENT
  Age: 58 Year
  Sex: Female

DRUGS (1)
  1. ENBREL [Suspect]
     Active Substance: ETANERCEPT
     Indication: PRODUCT USED FOR UNKNOWN INDICATION
     Dosage: UNK
     Route: 048

REACTIONS (7)
  - Fatigue [Unknown]
  - Pain [Unknown]
  - Pyrexia [Unknown]
  - Incorrect route of product administration [Unknown]
  - Somnolence [Unknown]
  - Systemic lupus erythematosus [Unknown]
  - Hyperhidrosis [Unknown]
